FAERS Safety Report 17467219 (Version 2)
Quarter: 2020Q1

REPORT INFORMATION
  Report Type: Spontaneous
  Country: IN (occurrence: IN)
  Receive Date: 20200227
  Receipt Date: 20200310
  Transmission Date: 20200409
  Serious: Yes (Death, Hospitalization)
  Sender: FDA-Public Use
  Company Number: IN-PFIZER INC-2020053698

PATIENT
  Age: 31 Year
  Sex: Female

DRUGS (1)
  1. INLYTA [Suspect]
     Active Substance: AXITINIB
     Indication: METASTATIC RENAL CELL CARCINOMA
     Dosage: 5 MG, 2X/DAY
     Route: 048
     Dates: start: 20200103

REACTIONS (5)
  - Cardiac arrest [Fatal]
  - Respiratory failure [Fatal]
  - Neoplasm progression [Fatal]
  - Respiratory disorder [Unknown]
  - Cardiac failure [Fatal]
